FAERS Safety Report 15210332 (Version 1)
Quarter: 2018Q3

REPORT INFORMATION
  Report Type: Spontaneous
  Country: CA (occurrence: CA)
  Receive Date: 20180727
  Receipt Date: 20180727
  Transmission Date: 20181010
  Serious: No
  Sender: FDA-Public Use
  Company Number: CA-TEVA-2018-CA-933316

PATIENT
  Age: 28 Year
  Sex: Female

DRUGS (2)
  1. ESCITALOPRAM [Suspect]
     Active Substance: ESCITALOPRAM OXALATE
     Indication: ANXIETY
     Route: 048
  2. ATIVAN [Concomitant]
     Active Substance: LORAZEPAM

REACTIONS (4)
  - Condition aggravated [Unknown]
  - Amnesia [Unknown]
  - Mydriasis [Unknown]
  - Somnambulism [Unknown]
